FAERS Safety Report 13659175 (Version 3)
Quarter: 2017Q3

REPORT INFORMATION
  Report Type: Spontaneous
  Country: JP (occurrence: JP)
  Receive Date: 20170616
  Receipt Date: 20170711
  Transmission Date: 20171127
  Serious: Yes (Death, Hospitalization)
  Sender: FDA-Public Use
  Company Number: JP-JNJFOC-20170613258

PATIENT
  Age: 86 Year
  Sex: Female
  Weight: 39 kg

DRUGS (12)
  1. TAKECAB [Concomitant]
     Active Substance: VONOPRAZAN FUMURATE
     Route: 065
  2. RHEUMATREX [Suspect]
     Active Substance: METHOTREXATE SODIUM
     Indication: PRODUCT USED FOR UNKNOWN INDICATION
     Route: 048
  3. MICARDIS [Concomitant]
     Active Substance: TELMISARTAN
     Dosage: 1 DF X 2 PER 1 DAY
     Route: 048
  4. POLAPREZINC [Concomitant]
     Active Substance: POLAPREZINC
     Dosage: 2 DF X 1 PER 1 DAY
     Route: 048
  5. SIMPONI [Suspect]
     Active Substance: GOLIMUMAB
     Indication: RHEUMATOID ARTHRITIS
     Route: 058
     Dates: start: 20161012, end: 20170526
  6. PREDNISOLONE. [Suspect]
     Active Substance: PREDNISOLONE
     Indication: PRODUCT USED FOR UNKNOWN INDICATION
     Route: 048
  7. HALFDIGOXIN [Concomitant]
     Active Substance: DIGOXIN
     Route: 048
  8. EQUA [Concomitant]
     Active Substance: VILDAGLIPTIN
     Route: 048
  9. WARFARIN POTASSIUM [Concomitant]
     Active Substance: WARFARIN POTASSIUM
     Route: 048
  10. FOLIAMIN [Concomitant]
     Active Substance: FOLIC ACID
     Dosage: 1 DF X 2 PER 1 DAY
     Route: 048
  11. CALBLOCK [Concomitant]
     Active Substance: AZELNIDIPINE
     Route: 048
  12. PURSENNID [Concomitant]
     Active Substance: SENNOSIDES A AND B
     Dosage: 2 DF X 1 PER 1 DAY
     Route: 048

REACTIONS (1)
  - Pneumocystis jirovecii pneumonia [Fatal]

NARRATIVE: CASE EVENT DATE: 20170525
